FAERS Safety Report 7764365-5 (Version None)
Quarter: 2011Q3

REPORT INFORMATION
  Report Type: 
  Country: None (occurrence: None)
  Receive Date: 20110921
  Receipt Date: 20110908
  Transmission Date: 20111222
  Serious: Yes (Life-Threatening, Hospitalization, Other)
  Sender: FDA-Public Use
  Company Number: NL-ELI_LILLY_AND_COMPANY-NL201109002899

PATIENT
  Sex: Female

DRUGS (6)
  1. THYRAX DUOTAB [Concomitant]
  2. SINTROM [Concomitant]
     Dosage: UNK
     Dates: start: 20090101
  3. MICARDIS [Concomitant]
  4. DIGOXIN [Concomitant]
  5. METOPROLOL TARTRATE [Concomitant]
  6. RALOXIFENE HYDROCHLORIDE [Suspect]
     Indication: OSTEOPOROSIS
     Dosage: 60 MG, QD
     Route: 048
     Dates: start: 20101001, end: 20110816

REACTIONS (4)
  - COORDINATION ABNORMAL [None]
  - CEREBRAL INFARCTION [None]
  - PARESIS [None]
  - APHASIA [None]
